FAERS Safety Report 5587750-9 (Version None)
Quarter: 2007Q4

REPORT INFORMATION
  Report Type: 
  Country: None (occurrence: None)
  Receive Date: 20071207
  Receipt Date: 20070717
  Transmission Date: 20080405
  Serious: Yes (Hospitalization, Other)
  Sender: FDA-Public Use
  Company Number: 39116

PATIENT
  Age: 80 Year
  Sex: Male
  Weight: 77.1115 kg

DRUGS (4)
  1. AMIODARONE HCL [Suspect]
     Indication: ATRIAL FIBRILLATION
     Dosage: 900MG/IV
     Route: 042
     Dates: start: 20070709, end: 20070711
  2. DILTIAZEM [Concomitant]
  3. DIGOXIN [Concomitant]
  4. MAGNESIUM SULFATE [Concomitant]

REACTIONS (1)
  - EXTRAVASATION [None]
